FAERS Safety Report 15205589 (Version 1)
Quarter: 2018Q3

REPORT INFORMATION
  Report Type: Spontaneous
  Country: US (occurrence: US)
  Receive Date: 20180628
  Receipt Date: 20180628
  Transmission Date: 20181010
  Serious: No
  Sender: FDA-Public Use
  Company Number: None

PATIENT
  Age: 5 Year
  Sex: Male
  Weight: 19.35 kg

DRUGS (1)
  1. FLUTICASONE PROPIONATE NASAL SPRAY USP [Suspect]
     Active Substance: FLUTICASONE PROPIONATE
     Indication: SEASONAL ALLERGY
     Dosage: ?          OTHER STRENGTH:50 MCG;QUANTITY:2 SPRAY(S);OTHER ROUTE:NASALLY?
     Dates: start: 20180504, end: 20180611

REACTIONS (4)
  - Nasal discomfort [None]
  - Epistaxis [None]
  - Instillation site pain [None]
  - Device malfunction [None]

NARRATIVE: CASE EVENT DATE: 20180611
